FAERS Safety Report 7537066-6 (Version None)
Quarter: 2011Q2

REPORT INFORMATION
  Report Type: 
  Country: None (occurrence: None)
  Receive Date: 20110609
  Receipt Date: 20110530
  Transmission Date: 20111010
  Serious: Yes (Hospitalization)
  Sender: FDA-Public Use
  Company Number: PHHY2010ZA84530

PATIENT
  Age: 55 Year
  Sex: Female

DRUGS (5)
  1. VALSARTAN [Suspect]
     Indication: HYPERTENSION
  2. ZOLEDRONIC ACID [Concomitant]
  3. WARFARIN SODIUM [Concomitant]
  4. LIPITOR [Concomitant]
  5. CALCIUM CARBONATE [Concomitant]

REACTIONS (1)
  - KIDNEY INFECTION [None]
